FAERS Safety Report 5558036-3 (Version None)
Quarter: 2007Q4

REPORT INFORMATION
  Report Type: 
  Country: None (occurrence: None)
  Receive Date: 20071130
  Receipt Date: 20070924
  Transmission Date: 20080405
  Serious: No
  Sender: FDA-Public Use
  Company Number: US200708006480

PATIENT
  Age: 62 Year
  Sex: Female

DRUGS (4)
  1. BYETTA [Suspect]
     Dosage: 5  UG, SUBCUTANEOUS, 10 UG, SUBCUTANEOUS
     Route: 058
     Dates: start: 20070824, end: 20070101
  2. BYETTA [Suspect]
     Dosage: 5  UG, SUBCUTANEOUS, 10 UG, SUBCUTANEOUS
     Route: 058
     Dates: start: 20070101
  3. EXENATIDE 5MCG PEN, DISPOSABLE DEVICE (EXENATIDE PEN (5MCG)) PEN, DISP [Concomitant]
  4. EXENATIDE 10MCG PEN, DISPOSABLE DEVICE (EXENATIDE PEN (10MCG)) PEN, DI [Concomitant]

REACTIONS (5)
  - DIARRHOEA [None]
  - DRY MOUTH [None]
  - FEELING ABNORMAL [None]
  - MALAISE [None]
  - NAUSEA [None]
